FAERS Safety Report 4426134-3 (Version None)
Quarter: 2004Q3

REPORT INFORMATION
  Report Type: 
  Country: None (occurrence: None)
  Receive Date: 20040811
  Receipt Date: 20040723
  Transmission Date: 20050211
  Serious: Yes (Other)
  Sender: FDA-Public Use
  Company Number: US_0407104477

PATIENT
  Age: 81 Year
  Sex: Female

DRUGS (2)
  1. EVISTA [Suspect]
  2. MIACALCIN [Concomitant]

REACTIONS (1)
  - HIP FRACTURE [None]
